FAERS Safety Report 13141350 (Version 6)
Quarter: 2017Q4

REPORT INFORMATION
  Report Type: Spontaneous
  Country: US (occurrence: US)
  Receive Date: 20170123
  Receipt Date: 20171124
  Transmission Date: 20180320
  Serious: No
  Sender: FDA-Public Use
  Company Number: US-PFIZER INC-2017029960

PATIENT
  Age: 61 Year
  Sex: Female
  Weight: 55.79 kg

DRUGS (6)
  1. LYRICA [Suspect]
     Active Substance: PREGABALIN
     Indication: NEURALGIA
     Dosage: UNK
  2. ASHWAGANDA [Concomitant]
     Dosage: 350 MG, UNK
  3. VALPROIC ACID. [Concomitant]
     Active Substance: VALPROIC ACID
     Indication: STRESS
     Dosage: 3X/DAY (600MG IN THE MORNING, 200MG IN THE AFTERNOON AND NIGHT)
  4. NATROL ALPHA LIPOIC ACID [Concomitant]
     Dosage: 600 MG, DAILY
  5. ASHWAGANDA [Concomitant]
     Indication: STRESS
     Dosage: 2 DF, DAILY (TWO CAPSULES A DAY)
  6. LYRICA [Suspect]
     Active Substance: PREGABALIN
     Indication: FIBROMYALGIA
     Dosage: 200 MG, 3X/DAY

REACTIONS (6)
  - Alopecia [Unknown]
  - Musculoskeletal pain [Unknown]
  - Dyspnoea [Unknown]
  - Drug ineffective [Not Recovered/Not Resolved]
  - Peripheral swelling [Unknown]
  - Osteoporosis [Unknown]
